APPROVED DRUG PRODUCT: METFORMIN HYDROCHLORIDE
Active Ingredient: METFORMIN HYDROCHLORIDE
Strength: 850MG
Dosage Form/Route: TABLET;ORAL
Application: A075965 | Product #002 | TE Code: AB
Applicant: EPIC PHARMA LLC
Approved: Jan 25, 2002 | RLD: No | RS: No | Type: RX